FAERS Safety Report 6796108-6 (Version None)
Quarter: 2010Q2

REPORT INFORMATION
  Report Type: 
  Country: None (occurrence: None)
  Receive Date: 20100625
  Receipt Date: 20100618
  Transmission Date: 20101027
  Serious: Yes (Death, Life-Threatening, Hospitalization)
  Sender: FDA-Public Use
  Company Number: US-ROCHE-680808

PATIENT
  Age: 61 Year
  Sex: Male
  Weight: 84 kg

DRUGS (15)
  1. BEVACIZUMAB [Suspect]
     Indication: NON-SMALL CELL LUNG CANCER
     Dosage: THIS WAS THE FIRST AND ONLY DOSE ADMINISTERED. 15 MG/KG
     Route: 042
     Dates: start: 20091202, end: 20091202
  2. CISPLATIN [Suspect]
     Indication: NON-SMALL CELL LUNG CANCER
     Dosage: 75 MG/M2.
     Route: 042
     Dates: start: 20091202, end: 20091202
  3. DOCETAXEL [Suspect]
     Indication: NON-SMALL CELL LUNG CANCER
     Dosage: 75 MG/M2
     Route: 042
     Dates: start: 20091202, end: 20091202
  4. GEMCITABINE HYDROCHLORIDE [Suspect]
     Indication: NON-SMALL CELL LUNG CANCER
     Route: 042
  5. PEMETREXED DISODIUM [Suspect]
     Indication: NON-SMALL CELL LUNG CANCER
     Route: 042
  6. VINORELBINE TARTRATE [Suspect]
     Indication: NON-SMALL CELL LUNG CANCER
     Route: 042
  7. ASPIRIN [Suspect]
     Indication: DRUG USE FOR UNKNOWN INDICATION
     Dosage: DRUG: ASA 81 MG
     Route: 065
  8. LEVOFLOXACIN [Suspect]
     Indication: DRUG USE FOR UNKNOWN INDICATION
     Dosage: DRUG: LEVAQUIN
     Route: 065
  9. FISH OIL [Concomitant]
  10. IBUPROFEN [Concomitant]
  11. GLUCOSAMINE [Concomitant]
  12. MELATONIN [Concomitant]
  13. ZOCOR [Concomitant]
  14. TOPROL-XL [Concomitant]
  15. VITAMINE D [Concomitant]

REACTIONS (3)
  - CARDIAC ARREST [None]
  - CEREBRAL ISCHAEMIA [None]
  - PULMONARY HAEMORRHAGE [None]
